FAERS Safety Report 5190455-X (Version None)
Quarter: 2006Q4

REPORT INFORMATION
  Report Type: 
  Country: None (occurrence: None)
  Receive Date: 20061222
  Receipt Date: 20061005
  Transmission Date: 20070319
  Serious: Yes (Hospitalization)
  Sender: FDA-Public Use
  Company Number: FR-ELI_LILLY_AND_COMPANY-FR200610001063

PATIENT
  Age: 55 Year
  Sex: Female
  Weight: 53 kg

DRUGS (2)
  1. ZYPREXA [Suspect]
     Indication: BIPOLAR DISORDER
     Dosage: 10 MG, DAILY (1/D)
     Route: 048
     Dates: start: 20060921, end: 20060925
  2. DEROXAT                                 /SCH/ [Concomitant]
     Indication: BIPOLAR DISORDER
     Dosage: 20 MG, DAILY (1/D)
     Route: 048
     Dates: start: 20060922, end: 20061002

REACTIONS (5)
  - DISORIENTATION [None]
  - HYPERTHERMIA [None]
  - HYPERTONIA [None]
  - MUSCLE SPASTICITY [None]
  - NEUROLEPTIC MALIGNANT SYNDROME [None]
